FAERS Safety Report 12635621 (Version 1)
Quarter: 2016Q3

REPORT INFORMATION
  Report Type: Spontaneous
  Country: US (occurrence: US)
  Receive Date: 20160809
  Receipt Date: 20160809
  Transmission Date: 20161109
  Serious: No
  Sender: FDA-Public Use
  Company Number: US-TARO-2016TAR00026

PATIENT
  Age: 62 Year
  Sex: Female
  Weight: 72.56 kg

DRUGS (4)
  1. LEVOTHYROXINE. [Concomitant]
     Active Substance: LEVOTHYROXINE
  2. PRAVASTATIN. [Concomitant]
     Active Substance: PRAVASTATIN
  3. TERBINAFINE HCL CREAM 1% (FEMALE) [Suspect]
     Active Substance: TERBINAFINE HYDROCHLORIDE
     Indication: ONYCHOMYCOSIS
     Dosage: SMALL AMOUNT APPLIED TO SKIN AROUND AFFECTED NAIL/CUTICLE, 2X/DAY
     Route: 061
     Dates: start: 201601, end: 201601
  4. CELEXA [Concomitant]
     Active Substance: CITALOPRAM HYDROBROMIDE

REACTIONS (5)
  - Rash [Recovering/Resolving]
  - Staphylococcal infection [Recovered/Resolved]
  - Blister [Recovering/Resolving]
  - Skin exfoliation [Recovering/Resolving]
  - Off label use [Recovered/Resolved]

NARRATIVE: CASE EVENT DATE: 201601
